FAERS Safety Report 7111700-7 (Version None)
Quarter: 2010Q4

REPORT INFORMATION
  Report Type: 
  Country: None (occurrence: None)
  Receive Date: 20101118
  Receipt Date: 20101109
  Transmission Date: 20110411
  Serious: Yes (Hospitalization, Other)
  Sender: FDA-Public Use
  Company Number: US-PFIZER INC-2010120024

PATIENT
  Sex: Female
  Weight: 59 kg

DRUGS (17)
  1. XALATAN [Suspect]
     Indication: INTRAOCULAR PRESSURE INCREASED
     Dosage: 1 DROP IN BOTH EYES AT BEDTIME
     Route: 047
     Dates: start: 20100624
  2. XALATAN [Suspect]
     Indication: GLAUCOMA
  3. METOPROLOL [Concomitant]
     Indication: HYPERTENSION
     Dosage: 50 MG, 2X/DAY
     Route: 048
  4. TOPROL-XL [Concomitant]
     Indication: HYPERTENSION
  5. ATACAND HCT [Concomitant]
     Indication: HYPERTENSION
     Dosage: [CANDESARTAN CILEXETIL 33MG]/[HYDROCHLOROTHIAZIDE 12.5MG]
     Route: 048
  6. ATACAND HCT [Concomitant]
     Indication: MITRAL VALVE PROLAPSE
  7. RANITIDINE [Concomitant]
     Indication: GASTRIC DISORDER
     Dosage: 150 MG, 1X/DAY
     Route: 048
  8. RANITIDINE [Concomitant]
     Indication: GASTROOESOPHAGEAL REFLUX DISEASE
  9. WARFARIN [Concomitant]
     Indication: HEART RATE IRREGULAR
     Dosage: 5 MG, 1X/DAY
     Route: 048
  10. NAPROXEN [Concomitant]
     Indication: ARTHRITIS
     Dosage: 500 MG, 2X/DAY
  11. ACETYLSALICYLIC ACID [Concomitant]
     Indication: CARDIAC DISORDER
     Dosage: 81 MG, 1X/DAY
  12. AMLODIPINE BESILATE [Concomitant]
     Indication: HYPERTENSION
     Dosage: 5 MG, 1X/DAY
  13. LISINOPRIL [Concomitant]
     Indication: HYPERTENSION
     Dosage: UNK
  14. LISINOPRIL [Concomitant]
     Indication: MITRAL VALVE PROLAPSE
  15. EVISTA [Concomitant]
     Indication: OSTEOPOROSIS
     Dosage: 60 MG, 1X/DAY
  16. CENTRUM SILVER [Concomitant]
     Dosage: UNK
  17. CALTRATE + D [Concomitant]
     Dosage: UNK

REACTIONS (2)
  - HEADACHE [None]
  - VISUAL ACUITY REDUCED [None]
